FAERS Safety Report 17730766 (Version 2)
Quarter: 2020Q2

REPORT INFORMATION
  Report Type: Spontaneous
  Country: SE (occurrence: SE)
  Receive Date: 20200430
  Receipt Date: 20200517
  Transmission Date: 20200714
  Serious: Yes (Other)
  Sender: FDA-Public Use
  Company Number: NVSC2020SE116593

PATIENT
  Sex: Female

DRUGS (7)
  1. ELVANSE [Concomitant]
     Active Substance: LISDEXAMFETAMINE DIMESYLATE
     Indication: PSYCHOTIC DISORDER
  2. ABILIFY [Concomitant]
     Active Substance: ARIPIPRAZOLE
     Indication: ANXIETY
     Route: 065
  3. QUETIAPIN 1A FARMA 200 MG DEPOTTABLETTER [Suspect]
     Active Substance: QUETIAPINE FUMARATE
     Indication: BIPOLAR DISORDER
     Dosage: 200 MG
     Route: 065
     Dates: start: 201810, end: 201905
  4. LITHIUM. [Concomitant]
     Active Substance: LITHIUM
     Indication: BIPOLAR DISORDER
     Dosage: UNK
     Route: 065
     Dates: start: 201810
  5. VOXRA [Concomitant]
     Active Substance: BUPROPION HYDROCHLORIDE
     Indication: BIPOLAR DISORDER
     Dosage: UNK
     Route: 065
     Dates: start: 201810, end: 201905
  6. ABILIFY [Concomitant]
     Active Substance: ARIPIPRAZOLE
     Indication: DEPRESSION
  7. ELVANSE [Concomitant]
     Active Substance: LISDEXAMFETAMINE DIMESYLATE
     Indication: MANIA
     Route: 065

REACTIONS (10)
  - Cerebral palsy [Unknown]
  - Fatigue [Unknown]
  - Epilepsy [Unknown]
  - Alopecia [Recovered/Resolved]
  - Therapeutic response delayed [Unknown]
  - Iron deficiency [Unknown]
  - Partial seizures [Unknown]
  - Muscle spasms [Unknown]
  - Hypersomnia [Unknown]
  - Feeding disorder [Unknown]

NARRATIVE: CASE EVENT DATE: 2019
